FAERS Safety Report 4385582-0 (Version None)
Quarter: 2004Q2

REPORT INFORMATION
  Report Type: 
  Country: None (occurrence: None)
  Receive Date: 20040625
  Receipt Date: 20040615
  Transmission Date: 20050107
  Serious: Yes (Hospitalization)
  Sender: FDA-Public Use
  Company Number: 001728

PATIENT
  Age: 19 Year
  Sex: Male
  Weight: 54.4 kg

DRUGS (1)
  1. CLARAVIS [Suspect]
     Indication: ACNE CYSTIC
     Dosage: 40.00 MG, BID, ORAL
     Route: 048
     Dates: start: 20031219, end: 20040519

REACTIONS (3)
  - ASTHENIA [None]
  - DUODENITIS [None]
  - ILEITIS [None]
